FAERS Safety Report 5064650-4 (Version None)
Quarter: 2006Q3

REPORT INFORMATION
  Report Type: 
  Country: None (occurrence: None)
  Receive Date: 20060728
  Receipt Date: 20060328
  Transmission Date: 20061208
  Serious: Yes (Other)
  Sender: FDA-Public Use
  Company Number: BR-ROCHE-442518

PATIENT
  Age: 23 Year
  Sex: Female
  Weight: 55 kg

DRUGS (6)
  1. ROACUTAN [Suspect]
     Indication: ACNE
     Route: 048
     Dates: start: 20051015, end: 20060215
  2. ROACUTAN [Suspect]
     Route: 048
     Dates: start: 20050425, end: 20050515
  3. ROACUTAN [Suspect]
     Route: 048
     Dates: start: 20050515, end: 20050615
  4. ROACUTAN [Suspect]
     Route: 048
     Dates: start: 20050615
  5. ROACUTAN [Suspect]
     Route: 048
     Dates: end: 20050715
  6. CYPROTERONE ACETATE/ETHINYLESTRADIOL [Concomitant]
     Indication: CONTRACEPTION
     Dosage: REPORTED AS ARTEMIDIS.
     Route: 048
     Dates: start: 20050915, end: 20051215

REACTIONS (4)
  - ABORTION SPONTANEOUS [None]
  - DRUG EXPOSURE DURING PREGNANCY [None]
  - HEADACHE [None]
  - PREGNANCY [None]
